FAERS Safety Report 25868131 (Version 2)
Quarter: 2025Q4

REPORT INFORMATION
  Report Type: Report from Study
  Country: US (occurrence: US)
  Receive Date: 20251001
  Receipt Date: 20251231
  Transmission Date: 20260119
  Serious: Yes (Hospitalization)
  Sender: JAZZ
  Company Number: US-JAZZ PHARMACEUTICALS-2025-US-022959

PATIENT
  Sex: Female

DRUGS (2)
  1. EPIDIOLEX [Suspect]
     Active Substance: CANNABIDIOL
     Indication: Lennox-Gastaut syndrome
     Dosage: 6.5 MILLILITER, BID
     Dates: start: 202101
  2. EPIDIOLEX [Suspect]
     Active Substance: CANNABIDIOL
     Dosage: 7.5 MILLILITER, BID
     Dates: start: 202101

REACTIONS (2)
  - Hospitalisation [Unknown]
  - Hospitalisation [Unknown]
